FAERS Safety Report 13413004 (Version 5)
Quarter: 2017Q4

REPORT INFORMATION
  Report Type: Spontaneous
  Country: US (occurrence: US)
  Receive Date: 20170407
  Receipt Date: 20171208
  Transmission Date: 20180320
  Serious: Yes (Other)
  Sender: FDA-Public Use
  Company Number: US-AMGEN-USASP2017048812

PATIENT
  Age: 66 Year
  Sex: Female

DRUGS (8)
  1. MELOXICAM. [Concomitant]
     Active Substance: MELOXICAM
  2. ENBREL [Suspect]
     Active Substance: ETANERCEPT
     Dosage: UNK UNK, QWK
     Route: 065
     Dates: start: 2017
  3. METHOTREXATE. [Concomitant]
     Active Substance: METHOTREXATE
  4. DICLOFENAC [Concomitant]
     Active Substance: DICLOFENAC
  5. HUMIRA [Suspect]
     Active Substance: ADALIMUMAB
     Indication: PRODUCT USED FOR UNKNOWN INDICATION
     Route: 065
  6. ENBREL [Suspect]
     Active Substance: ETANERCEPT
     Indication: PSORIATIC ARTHROPATHY
     Dosage: UNK UNK, QWK
     Route: 065
  7. ENBREL [Suspect]
     Active Substance: ETANERCEPT
     Dosage: UNK
     Route: 065
     Dates: start: 201701
  8. ARAVA [Concomitant]
     Active Substance: LEFLUNOMIDE

REACTIONS (31)
  - Overweight [Not Recovered/Not Resolved]
  - Scab [Not Recovered/Not Resolved]
  - Sleep apnoea syndrome [Not Recovered/Not Resolved]
  - Osteoarthritis [Not Recovered/Not Resolved]
  - Bone pain [Not Recovered/Not Resolved]
  - Dry eye [Not Recovered/Not Resolved]
  - Eczema [Not Recovered/Not Resolved]
  - Injection site pain [Unknown]
  - Urinary tract infection [Recovering/Resolving]
  - Pollakiuria [Recovering/Resolving]
  - Genito-pelvic pain/penetration disorder [Unknown]
  - Post procedural complication [Not Recovered/Not Resolved]
  - Urticaria [Not Recovered/Not Resolved]
  - Emotional distress [Not Recovered/Not Resolved]
  - Psoriasis [Recovering/Resolving]
  - Skin mass [Unknown]
  - Fall [Recovered/Resolved]
  - Stress [Unknown]
  - Skin disorder [Recovered/Resolved]
  - Foot operation [Unknown]
  - Spinal disorder [Not Recovered/Not Resolved]
  - Nerve injury [Not Recovered/Not Resolved]
  - Cystitis [Not Recovered/Not Resolved]
  - Sinusitis [Unknown]
  - Impaired healing [Recovering/Resolving]
  - Bladder disorder [Unknown]
  - Paraesthesia [Unknown]
  - Chondropathy [Not Recovered/Not Resolved]
  - Cerebral disorder [Not Recovered/Not Resolved]
  - Mobility decreased [Recovering/Resolving]
  - Infection [Recovered/Resolved]

NARRATIVE: CASE EVENT DATE: 201105
